FAERS Safety Report 6112657-8 (Version None)
Quarter: 2009Q1

REPORT INFORMATION
  Report Type: 
  Country: None (occurrence: None)
  Receive Date: 20090312
  Receipt Date: 20090306
  Transmission Date: 20090719
  Serious: Yes (Other)
  Sender: FDA-Public Use
  Company Number: US-ASTRAZENECA-2009UW06099

PATIENT
  Age: 80 Year
  Sex: Female
  Weight: 65.8 kg

DRUGS (9)
  1. CRESTOR [Suspect]
     Indication: BLOOD CHOLESTEROL INCREASED
     Route: 048
  2. EXFORGE [Concomitant]
     Indication: HYPERTENSION
  3. TRIAMETRIC [Concomitant]
     Indication: GLAUCOMA
     Route: 065
  4. XANAX [Concomitant]
     Indication: ANXIETY
  5. XANAX [Concomitant]
     Indication: INTESTINAL FUNCTIONAL DISORDER
  6. ZOLOFT [Concomitant]
     Indication: ANXIETY
  7. VITAMIN E [Concomitant]
     Indication: SUPPLEMENTATION THERAPY
  8. CAL-D [Concomitant]
     Indication: SUPPLEMENTATION THERAPY
  9. MULTI-VITAMIN [Concomitant]
     Indication: SUPPLEMENTATION THERAPY

REACTIONS (4)
  - BACK PAIN [None]
  - CHEST PAIN [None]
  - NECK PAIN [None]
  - PAIN IN EXTREMITY [None]
